FAERS Safety Report 4494257-9 (Version None)
Quarter: 2004Q4

REPORT INFORMATION
  Report Type: 
  Country: None (occurrence: None)
  Receive Date: 20041104
  Receipt Date: 20041104
  Transmission Date: 20050328
  Serious: Yes (Hospitalization)
  Sender: FDA-Public Use
  Company Number: None

PATIENT
  Age: 77 Year
  Sex: Male
  Weight: 78 kg

DRUGS (17)
  1. THALIDOMIDE [Suspect]
     Indication: PROSTATE CANCER
     Dosage: 100 MG PO
     Route: 048
     Dates: start: 20041022, end: 20041101
  2. INITINIB [Suspect]
     Dosage: 200 MG PO
     Route: 048
     Dates: start: 20041022, end: 20041101
  3. ABSORBASE TOP OINT [Concomitant]
  4. ACCU-CHEK COMFORT CV-GLUCOSE-TEST STRIP [Concomitant]
  5. ALPRAZOLAM [Concomitant]
  6. CAPSAICIN [Concomitant]
  7. FLUTICASONE PROP [Concomitant]
  8. FUROSEMIDE [Concomitant]
  9. HYDROCODONE 5/ACETAMINOPHEN [Concomitant]
  10. IMATINIB MESYLATE [Concomitant]
  11. IRBESARTAN [Concomitant]
  12. LOPERAMIDE HCL [Concomitant]
  13. METFORMIN HCL [Concomitant]
  14. MORPHINE SO4 [Concomitant]
  15. POTASSIUM CHLORIDE [Concomitant]
  16. SIMVASTATIN [Concomitant]
  17. THALIDOMIDE [Concomitant]

REACTIONS (5)
  - ABDOMINAL PAIN [None]
  - ANAEMIA [None]
  - DECREASED APPETITE [None]
  - DEHYDRATION [None]
  - RASH [None]
